FAERS Safety Report 4774964-0 (Version None)
Quarter: 2005Q3

REPORT INFORMATION
  Report Type: 
  Country: None (occurrence: None)
  Receive Date: 20050920
  Receipt Date: 20050906
  Transmission Date: 20060218
  Serious: Yes (Hospitalization)
  Sender: FDA-Public Use
  Company Number: 2005-01192

PATIENT
  Age: 68 Year
  Sex: Female
  Weight: 42 kg

DRUGS (1)
  1. VELCADE [Suspect]
     Indication: MULTIPLE MYELOMA
     Dosage: 1.35 MG , 2/WEEK, IV BOLUS
     Route: 040
     Dates: start: 20030930, end: 20040903

REACTIONS (10)
  - ANAEMIA [None]
  - BLOOD LACTATE DEHYDROGENASE INCREASED [None]
  - FEBRILE BONE MARROW APLASIA [None]
  - GAMMA-GLUTAMYLTRANSFERASE INCREASED [None]
  - HISTIOCYTOSIS HAEMATOPHAGIC [None]
  - LYMPHOPENIA [None]
  - PROTEIN TOTAL INCREASED [None]
  - RENAL FAILURE [None]
  - SERUM FERRITIN INCREASED [None]
  - THROMBOCYTOPENIA [None]
